FAERS Safety Report 10194952 (Version 1)
Quarter: 2014Q2

REPORT INFORMATION
  Report Type: Spontaneous
  Country: US (occurrence: US)
  Receive Date: 20140526
  Receipt Date: 20140526
  Transmission Date: 20141212
  Serious: No
  Sender: FDA-Public Use
  Company Number: US-PFIZER INC-2014136734

PATIENT
  Age: 90 Year
  Sex: Female
  Weight: 84.35 kg

DRUGS (20)
  1. REVATIO [Suspect]
     Indication: PULMONARY HYPERTENSION
     Dosage: 20 MG, 3X/DAY
     Dates: start: 2010
  2. LIPITOR [Concomitant]
     Dosage: 40 MG, DAILY
     Route: 048
  3. VESICARE [Concomitant]
     Dosage: 10 MG, DAILY
     Route: 048
  4. MYRBETRIQ [Concomitant]
     Dosage: 25 MG, UNK
     Route: 048
  5. LASIX [Concomitant]
     Dosage: 20 MG, DAILY
     Route: 048
  6. PLAVIX [Concomitant]
     Dosage: 75 MG, DAILY
     Route: 048
  7. CULTURELLE PROBIOTICS [Concomitant]
     Dosage: UNK, DAILY
     Route: 048
  8. MAG-OX [Concomitant]
     Dosage: 400 MG, DAILY
     Route: 048
  9. VITAMIN B-12 [Concomitant]
     Dosage: 500 UG, DAILY
     Route: 048
  10. PROTONIX [Concomitant]
     Dosage: 40 MG, DAILY
     Route: 048
  11. TOPROL XL [Concomitant]
     Dosage: 25 MG 24 HR TABLET, DAILY
     Route: 048
  12. ALDACTONE [Concomitant]
     Dosage: 25 MG, DAILY
     Route: 048
  13. ASPIRIN [Concomitant]
     Dosage: 162 MG, DAILY
     Route: 048
  14. CO Q-10 [Concomitant]
     Dosage: 400 MG, DAILY
     Route: 048
  15. ULTRAM [Concomitant]
     Dosage: 50 MG EVERY 6 HRS, AS NEEDED
     Route: 048
  16. TOVIAZ [Concomitant]
     Dosage: 4 MG, UNK
     Route: 048
  17. CYMBALTA [Concomitant]
     Dosage: 30 MG, DAILY
     Route: 048
  18. CYMBALTA [Concomitant]
     Dosage: 60 MG, DAILY
     Route: 048
  19. CILOXAN [Concomitant]
     Dosage: 2 DF, 4X/DAY
  20. CENTRUM SILVER [Concomitant]
     Dosage: UNK
     Route: 048

REACTIONS (2)
  - Dyspnoea [Unknown]
  - Oedema peripheral [Unknown]
